FAERS Safety Report 4712189-5 (Version None)
Quarter: 2005Q3

REPORT INFORMATION
  Report Type: 
  Country: None (occurrence: None)
  Receive Date: 20050712
  Receipt Date: 20050520
  Transmission Date: 20060218
  Serious: Yes (Hospitalization)
  Sender: FDA-Public Use
  Company Number: JP-BRISTOL-MYERS SQUIBB COMPANY-12985107

PATIENT
  Age: 99 Year
  Sex: Female

DRUGS (7)
  1. GATIFLO TABS 100 MG [Suspect]
     Indication: URINARY TRACT INFECTION
     Dosage: VIA GASTROSTOMY TUBE
     Route: 050
     Dates: start: 20050421, end: 20050426
  2. ASPIRIN [Concomitant]
     Dosage: VIA GASTROSTOMY TUBE
     Route: 050
  3. FUROSEMIDE [Concomitant]
     Dosage: VIA GASTROSTOMY TUBE
     Route: 050
  4. PERSANTIN [Concomitant]
     Dosage: VIA GASTROSTOMY TUBE
     Route: 050
     Dates: end: 20050427
  5. GASMOTIN [Concomitant]
     Dosage: VIA GASTROSTOMY TUBE
     Route: 050
  6. CALCIUM LACTATE [Concomitant]
     Dosage: VIA GASTROSTOMY TUBE
     Route: 050
  7. MAGNESIUM OXIDE [Concomitant]
     Dosage: VIA GASTROSTOMY TUBE
     Route: 050

REACTIONS (1)
  - HYPERGLYCAEMIA [None]
